FAERS Safety Report 18241720 (Version 2)
Quarter: 2020Q4

REPORT INFORMATION
  Report Type: Spontaneous
  Country: US (occurrence: US)
  Receive Date: 20200908
  Receipt Date: 20201001
  Transmission Date: 20210113
  Serious: Yes (Hospitalization)
  Sender: FDA-Public Use
  Company Number: US-SAOL THERAPEUTICS-2020SAO00384

PATIENT
  Sex: Female

DRUGS (2)
  1. LIORESAL [Suspect]
     Active Substance: BACLOFEN
     Indication: CEREBROVASCULAR ACCIDENT
  2. LIORESAL [Suspect]
     Active Substance: BACLOFEN
     Indication: MUSCLE SPASTICITY
     Dosage: 267 ?G, \DAY
     Route: 037
     Dates: end: 20200819

REACTIONS (3)
  - Product dose omission issue [Unknown]
  - Treatment noncompliance [Unknown]
  - Encephalitis [Unknown]

NARRATIVE: CASE EVENT DATE: 2020
